FAERS Safety Report 17225195 (Version 1)
Quarter: 2020Q1

REPORT INFORMATION
  Report Type: Spontaneous
  Country: IN (occurrence: IN)
  Receive Date: 20200101
  Receipt Date: 20200101
  Transmission Date: 20200409
  Serious: Yes (Hospitalization)
  Sender: FDA-Public Use
  Company Number: None

PATIENT
  Age: 22 Year
  Sex: Female
  Weight: 65.77 kg

DRUGS (9)
  1. BENADRYL [Concomitant]
     Active Substance: DIPHENHYDRAMINE HYDROCHLORIDE
  2. FLUCONAZOLE. [Suspect]
     Active Substance: FLUCONAZOLE
     Indication: VULVOVAGINAL CANDIDIASIS
     Dosage: ??          OTHER FREQUENCY:Q72H;?
     Route: 048
     Dates: start: 20190409, end: 20190415
  3. PROAIR HFA [Concomitant]
     Active Substance: ALBUTEROL SULFATE
  4. JUNEL FE 1/20 [Concomitant]
     Active Substance: ETHINYL ESTRADIOL\NORETHINDRONE ACETATE
  5. MONTELUKAST [Concomitant]
     Active Substance: MONTELUKAST SODIUM
  6. ALBUTEROL. [Concomitant]
     Active Substance: ALBUTEROL
  7. FLUCONAZOLE. [Suspect]
     Active Substance: FLUCONAZOLE
     Indication: VULVOVAGINITIS
     Dosage: ?          OTHER FREQUENCY:ONE TIME DOSE;?
     Route: 048
     Dates: start: 20191029, end: 20191029
  8. FLUCONAZOLE. [Suspect]
     Active Substance: FLUCONAZOLE
     Indication: CANDIDA INFECTION
     Dosage: ?          OTHER FREQUENCY:ONE TIME DOSE;?
     Route: 048
     Dates: start: 20191029, end: 20191029
  9. ZYRTEC [Concomitant]
     Active Substance: CETIRIZINE HYDROCHLORIDE
     Dates: start: 20191017

REACTIONS (2)
  - Bronchitis [None]
  - Respiratory failure [None]

NARRATIVE: CASE EVENT DATE: 20191017
